FAERS Safety Report 17787124 (Version 2)
Quarter: 2025Q3

REPORT INFORMATION
  Report Type: Spontaneous
  Country: EU (occurrence: EU)
  Receive Date: 20200514
  Receipt Date: 20250704
  Transmission Date: 20251021
  Serious: Yes (Death, Other)
  Sender: TEVA
  Company Number: EU-EMA-DD-20200429-JAIN_H1-102334

PATIENT
  Age: 8 Year
  Sex: Female

DRUGS (9)
  1. FLUDARABINE [Suspect]
     Active Substance: FLUDARABINE PHOSPHATE
     Indication: Surgical preconditioning
     Route: 065
  2. CYCLOSPORINE [Concomitant]
     Active Substance: CYCLOSPORINE
     Indication: Prophylaxis against graft versus host disease
     Route: 065
     Dates: start: 20191211, end: 20200114
  3. THIOTEPA [Suspect]
     Active Substance: THIOTEPA
     Indication: Surgical preconditioning
     Route: 042
  4. INOTUZUMAB OZOGAMICIN [Suspect]
     Active Substance: INOTUZUMAB OZOGAMICIN
     Indication: Acute lymphocytic leukaemia
     Route: 065
     Dates: start: 20191107, end: 20191121
  5. TREOSULFAN [Suspect]
     Active Substance: TREOSULFAN
     Indication: Surgical preconditioning
     Route: 042
  6. MYCOPHENOLATE MOFETIL [Concomitant]
     Active Substance: MYCOPHENOLATE MOFETIL
     Indication: Prophylaxis against graft versus host disease
     Route: 065
     Dates: start: 20191211, end: 20200114
  7. CYCLOPHOSPHAMIDE [Concomitant]
     Active Substance: CYCLOPHOSPHAMIDE
     Indication: Prophylaxis against graft versus host disease
     Route: 065
     Dates: start: 20191211, end: 20200114
  8. CYCLOPHOSPHAMIDE [Concomitant]
     Active Substance: CYCLOPHOSPHAMIDE
     Indication: Prophylaxis against graft versus host disease
     Route: 042
     Dates: start: 20191214, end: 20191215
  9. RITUXIMAB [Concomitant]
     Active Substance: RITUXIMAB
     Indication: Prophylaxis against graft versus host disease
     Route: 065
     Dates: start: 20191210, end: 20191210

REACTIONS (1)
  - Venoocclusive liver disease [Fatal]

NARRATIVE: CASE EVENT DATE: 20191214
